FAERS Safety Report 5054927-0 (Version None)
Quarter: 2006Q3

REPORT INFORMATION
  Report Type: 
  Country: None (occurrence: None)
  Receive Date: 20060717
  Receipt Date: 20060705
  Transmission Date: 20061208
  Serious: Yes (Other)
  Sender: FDA-Public Use
  Company Number: 2005131094

PATIENT
  Age: 68 Year
  Sex: Male
  Weight: 97.5234 kg

DRUGS (13)
  1. LIPITOR [Suspect]
     Indication: BLOOD CHOLESTEROL INCREASED
     Dosage: 20 MG (20 MG, 1 IN 1 D)
  2. LASIX [Concomitant]
  3. TOPROL-XL [Concomitant]
  4. ALLOPURINOL [Concomitant]
  5. PROZAC [Concomitant]
  6. COUMADIN [Concomitant]
  7. GARLIC [Concomitant]
  8. SAW PALMETTO [Concomitant]
  9. CALCIUM GLUCONATE [Concomitant]
  10. MAGNESIUM [Concomitant]
  11. ZINC [Concomitant]
  12. MULTIPLE VITAMINS (ASCORBIC ACID, ERGOCALCIFEROL, FOLIC ACID, RETINOL, [Concomitant]
  13. FISH OIL [Concomitant]

REACTIONS (9)
  - DIABETES MELLITUS [None]
  - DIABETIC NEUROPATHY [None]
  - FOOD ALLERGY [None]
  - HEARING IMPAIRED [None]
  - MEMORY IMPAIRMENT [None]
  - MITRAL VALVE REPAIR [None]
  - MITRAL VALVE REPLACEMENT [None]
  - MYALGIA [None]
  - TRICUSPID VALVE REPLACEMENT [None]
